FAERS Safety Report 24202309 (Version 1)
Quarter: 2024Q3

REPORT INFORMATION
  Report Type: Spontaneous
  Country: US (occurrence: US)
  Receive Date: 20240812
  Receipt Date: 20240812
  Transmission Date: 20241017
  Serious: Yes (Other)
  Sender: ALKEM
  Company Number: US-ALKEM LABORATORIES LIMITED-US-ALKEM-2024-18222

PATIENT
  Age: 6 Decade
  Sex: Male

DRUGS (10)
  1. CLOPIDOGREL [Suspect]
     Active Substance: CLOPIDOGREL BISULFATE
     Indication: Aneurysm repair
     Dosage: UNK
     Route: 065
  2. CLOPIDOGREL [Suspect]
     Active Substance: CLOPIDOGREL BISULFATE
     Indication: Carotid artery aneurysm
  3. ASPIRIN [Suspect]
     Active Substance: ASPIRIN
     Indication: Aneurysm repair
     Dosage: 325 MILLIGRAM (PO DAILY)
     Route: 048
  4. ASPIRIN [Suspect]
     Active Substance: ASPIRIN
     Indication: Carotid artery aneurysm
  5. PRASUGREL [Suspect]
     Active Substance: PRASUGREL
     Indication: Aneurysm repair
     Dosage: 60 MILLIGRAM (PO LOAD)
     Route: 048
  6. PRASUGREL [Suspect]
     Active Substance: PRASUGREL
     Indication: Carotid artery aneurysm
     Dosage: 10 MILLIGRAM (PO DAILY)
     Route: 048
  7. BIVALIRUDIN [Concomitant]
     Active Substance: BIVALIRUDIN
     Indication: Venous thrombosis
     Dosage: INTRAVENOUS DRIP
     Route: 065
  8. BIVALIRUDIN [Concomitant]
     Active Substance: BIVALIRUDIN
     Indication: Pulmonary embolism
  9. COUMADIN [Concomitant]
     Active Substance: WARFARIN SODIUM
     Indication: Venous thrombosis
     Dosage: UNK
     Route: 065
  10. COUMADIN [Concomitant]
     Active Substance: WARFARIN SODIUM
     Indication: Pulmonary embolism

REACTIONS (4)
  - Carotid artery perforation [Unknown]
  - Drug resistance [Unknown]
  - Haematoma [Unknown]
  - Scrotal haematoma [Unknown]
